FAERS Safety Report 18718629 (Version 1)
Quarter: 2021Q1

REPORT INFORMATION
  Report Type: Spontaneous
  Country: JP (occurrence: JP)
  Receive Date: 20210108
  Receipt Date: 20210108
  Transmission Date: 20210419
  Serious: Yes (Death, Other)
  Sender: FDA-Public Use
  Company Number: JP-PFIZER INC-2021001486

PATIENT
  Age: 71 Year
  Sex: Male
  Weight: 53 kg

DRUGS (13)
  1. LEUCOVORIN. [Concomitant]
     Active Substance: LEUCOVORIN
     Dosage: 45 MG, 4X/DAY
     Dates: start: 20201009
  2. NARUSUS [Concomitant]
     Active Substance: HYDROMORPHONE HYDROCHLORIDE
     Dosage: UNK
  3. CYTARABINE. [Suspect]
     Active Substance: CYTARABINE
     Indication: DIFFUSE LARGE B-CELL LYMPHOMA
     Dosage: 9600 MG, DAILY
     Route: 041
     Dates: start: 20201007, end: 20201008
  4. CALONAL [Concomitant]
     Active Substance: ACETAMINOPHEN
     Dosage: UNK
  5. DIAMOX SEQUELS [Concomitant]
     Active Substance: ACETAZOLAMIDE
     Dosage: 250 MG, 2X/DAY
     Dates: start: 20201008
  6. NEOPHAGEN [Concomitant]
     Active Substance: GLYCYRRHIZIN
     Dosage: UNK
  7. METHOTREXATE. [Suspect]
     Active Substance: METHOTREXATE
     Indication: DIFFUSE LARGE B-CELL LYMPHOMA
     Dosage: 1620 MG, DAILY
     Route: 041
     Dates: start: 20201006, end: 20201006
  8. LANSOPRAZOLE. [Concomitant]
     Active Substance: LANSOPRAZOLE
     Dosage: UNK
  9. LEUCOVORIN. [Concomitant]
     Active Substance: LEUCOVORIN
     Dosage: 24 MG, 4X/DAY
     Dates: start: 20201008, end: 20201008
  10. MEYLON [Concomitant]
     Active Substance: SODIUM BICARBONATE
     Dosage: UNK
  11. LEUCOVORIN. [Concomitant]
     Active Substance: LEUCOVORIN
     Dosage: 15 MG, 4X/DAY
  12. PRIMPERAN [Concomitant]
     Active Substance: METOCLOPRAMIDE HYDROCHLORIDE
     Dosage: UNK
  13. ACICLOVIR [Concomitant]
     Active Substance: ACYCLOVIR
     Dosage: UNK

REACTIONS (3)
  - Leukoencephalopathy [Fatal]
  - Pneumonia [Fatal]
  - Febrile neutropenia [Unknown]

NARRATIVE: CASE EVENT DATE: 202010
